FAERS Safety Report 24226603 (Version 1)
Quarter: 2024Q3

REPORT INFORMATION
  Report Type: Spontaneous
  Country: CN (occurrence: CN)
  Receive Date: 20240820
  Receipt Date: 20240820
  Transmission Date: 20241016
  Serious: Yes (Life-Threatening, Other)
  Sender: BAYER
  Company Number: CN-BAYER-2024A115812

PATIENT
  Age: 29 Year
  Sex: Male

DRUGS (1)
  1. GADOBUTROL [Suspect]
     Active Substance: GADOBUTROL
     Indication: Magnetic resonance imaging head
     Dosage: 7.5 ML, ONCE
     Route: 042
     Dates: start: 20240801, end: 20240801

REACTIONS (10)
  - Anaphylactic shock [Unknown]
  - Seizure [Unknown]
  - Foaming at mouth [Unknown]
  - Labelled drug-disease interaction issue [None]
  - Depressed level of consciousness [None]
  - Unresponsive to stimuli [None]
  - Blood pressure immeasurable [Recovering/Resolving]
  - Dysarthria [None]
  - Blood pressure increased [Recovered/Resolved]
  - Heart rate increased [None]

NARRATIVE: CASE EVENT DATE: 20240801
